FAERS Safety Report 7870731-X (Version None)
Quarter: 2011Q4

REPORT INFORMATION
  Report Type: 
  Country: None (occurrence: None)
  Receive Date: 20111029
  Receipt Date: 20110221
  Transmission Date: 20120403
  Serious: No
  Sender: FDA-Public Use
  Company Number: US-AMGEN-USASP2011010104

PATIENT
  Age: 61 Year
  Sex: Female

DRUGS (2)
  1. ENBREL [Suspect]
     Indication: RHEUMATOID ARTHRITIS
     Dosage: 50 MG, QWK
     Dates: start: 20110115
  2. METHOTREXATE [Concomitant]
     Dosage: 6 MG, UNK
     Dates: start: 20101115

REACTIONS (2)
  - BURNING SENSATION [None]
  - LOCAL SWELLING [None]
